FAERS Safety Report 16066554 (Version 2)
Quarter: 2019Q1

REPORT INFORMATION
  Report Type: Spontaneous
  Country: CH (occurrence: CH)
  Receive Date: 20190313
  Receipt Date: 20190320
  Transmission Date: 20190418
  Serious: Yes (Other)
  Sender: FDA-Public Use
  Company Number: PHHY2019CH053773

PATIENT
  Age: 56 Year
  Sex: Male

DRUGS (4)
  1. MONTELUKAST SODIUM. [Suspect]
     Active Substance: MONTELUKAST SODIUM
     Indication: ASTHMA
     Dosage: 10 MG, UNK
     Route: 048
  2. BUDESONIDE+FORMOTEROL [Suspect]
     Active Substance: BUDESONIDE\FORMOTEROL
     Indication: ASTHMA
     Dosage: UNK UKN, UNK BUDESONID (200 MCG)/FORMOTEROL (6 MCG) 1 X 1 APPLICATION
     Route: 065
  3. SALBUTAMOL [Suspect]
     Active Substance: ALBUTEROL
     Indication: ASTHMA
     Dosage: WHEN NEEDED (CA.4-8/DAY)
     Route: 065
  4. PREDNISOLONE. [Suspect]
     Active Substance: PREDNISOLONE
     Indication: ASTHMA
     Dosage: 5 MG, UNK
     Route: 065

REACTIONS (5)
  - Wheezing [Recovered/Resolved]
  - Asthma [Unknown]
  - Sputum purulent [Unknown]
  - Dyspnoea at rest [Unknown]
  - Prolonged expiration [Unknown]
